FAERS Safety Report 6893346-9 (Version None)
Quarter: 2010Q3

REPORT INFORMATION
  Report Type: 
  Country: None (occurrence: None)
  Receive Date: 20100731
  Receipt Date: 20090819
  Transmission Date: 20110219
  Serious: No
  Sender: FDA-Public Use
  Company Number: US-PFIZER INC-2009233550

PATIENT
  Sex: Male
  Weight: 97.052 kg

DRUGS (5)
  1. LIPITOR [Suspect]
     Indication: BLOOD CHOLESTEROL INCREASED
     Dosage: 10 MG, 1X/DAY
     Dates: start: 20030101
  2. SULINDAC [Concomitant]
     Dosage: 200 MG/DAY
  3. GLUCOSAMINE [Concomitant]
     Dosage: 1500 MG, 1X/DAY
  4. CHONDROITIN/GLUCOSAMINE [Concomitant]
  5. MULTI-VITAMINS [Concomitant]
     Dosage: UNK

REACTIONS (1)
  - AMNESIA [None]
